FAERS Safety Report 10641075 (Version 8)
Quarter: 2016Q1

REPORT INFORMATION
  Report Type: Report from Study
  Country: CA (occurrence: CA)
  Receive Date: 20141209
  Receipt Date: 20160302
  Transmission Date: 20160525
  Serious: Yes (Other)
  Sender: FDA-Public Use
  Company Number: CA-CELGENE-CAN-2014120344

PATIENT
  Age: 77 Year
  Sex: Male
  Weight: 57.7 kg

DRUGS (90)
  1. CELECOXIB. [Concomitant]
     Active Substance: CELECOXIB
     Dosage: 2 MILLIGRAM
     Route: 048
     Dates: start: 20131008, end: 20131025
  2. ASPIRIN. [Concomitant]
     Active Substance: ASPIRIN
     Indication: MUSCULOSKELETAL PAIN
  3. LORAZEPAM. [Concomitant]
     Active Substance: LORAZEPAM
     Route: 048
     Dates: start: 20120301, end: 20131231
  4. FUROSEMIDE. [Concomitant]
     Active Substance: FUROSEMIDE
     Route: 048
     Dates: start: 20120309, end: 20140309
  5. APO-HYDROXYZINE [Concomitant]
     Active Substance: HYDROXYZINE HYDROCHLORIDE
     Indication: VASCULAR PURPURA
     Route: 048
     Dates: start: 20110107, end: 20110119
  6. DOCUSATE SODIUM. [Concomitant]
     Active Substance: DOCUSATE SODIUM
     Indication: CONSTIPATION
     Route: 048
     Dates: start: 20110106
  7. SENNOSIDES. [Concomitant]
     Active Substance: SENNOSIDES
     Indication: CONSTIPATION
     Route: 048
     Dates: start: 20110106
  8. PAMIDRONATE DISODIUM. [Concomitant]
     Active Substance: PAMIDRONATE DISODIUM
     Indication: SKELETAL INJURY
     Route: 041
     Dates: start: 20111101, end: 20120120
  9. ZOPICLONE [Concomitant]
     Active Substance: ZOPICLONE
     Indication: INSOMNIA
     Dosage: 5 MILLIGRAM
     Route: 048
     Dates: start: 20110524, end: 20111003
  10. HEPARIN [Concomitant]
     Active Substance: HEPARIN SODIUM
     Indication: THROMBOSIS PROPHYLAXIS
     Route: 041
     Dates: start: 20120226, end: 20120227
  11. MOXIFLOXACIN. [Concomitant]
     Active Substance: MOXIFLOXACIN
     Indication: CATARACT
     Route: 065
     Dates: start: 20130107, end: 20130113
  12. NEPAFENAC [Concomitant]
     Active Substance: NEPAFENAC
     Indication: CATARACT
     Dosage: 50 MILLIGRAM
     Route: 065
     Dates: start: 20130107, end: 20130113
  13. NEPAFENAC [Concomitant]
     Active Substance: NEPAFENAC
     Dosage: 2 MILLIGRAM
     Route: 065
     Dates: start: 20130326, end: 20130401
  14. CC-5013 [Suspect]
     Active Substance: LENALIDOMIDE
     Route: 048
     Dates: start: 20141031, end: 20141121
  15. CC-5013 [Suspect]
     Active Substance: LENALIDOMIDE
     Route: 048
     Dates: start: 20150123
  16. DEXAMETHASONE. [Suspect]
     Active Substance: DEXAMETHASONE
     Route: 048
     Dates: start: 20140807
  17. FINASTERIDE. [Concomitant]
     Active Substance: FINASTERIDE
     Indication: BENIGN PROSTATIC HYPERPLASIA
     Dosage: 4 PERCENT
     Route: 048
     Dates: start: 20110609
  18. IBUPROFEN. [Concomitant]
     Active Substance: IBUPROFEN
     Indication: NECK PAIN
     Dosage: 1500 MILLIGRAM
     Route: 048
     Dates: start: 20111015
  19. PRO-AZYTHROMYCINE [Concomitant]
     Indication: EAR INFECTION
     Route: 048
     Dates: start: 20120528, end: 20120531
  20. NEPAFENAC [Concomitant]
     Active Substance: NEPAFENAC
     Route: 065
     Dates: start: 20130128, end: 20130203
  21. TRAMADOL. [Concomitant]
     Active Substance: TRAMADOL
     Indication: HERNIA REPAIR
     Dosage: 1000 MILLIGRAM
     Route: 048
     Dates: start: 20130213, end: 20130213
  22. RAN CLARITHYROMYCIN [Concomitant]
     Indication: COUGH
     Route: 048
     Dates: start: 20140429, end: 20140503
  23. ANCEF [Concomitant]
     Active Substance: CEFAZOLIN SODIUM
     Indication: INFECTION PROPHYLAXIS
     Route: 041
     Dates: start: 20141216, end: 20141216
  24. DILAUDID [Concomitant]
     Active Substance: HYDROMORPHONE HYDROCHLORIDE
     Indication: ABDOMINAL PAIN
     Route: 048
     Dates: start: 20141218, end: 20141218
  25. FENTANYL. [Concomitant]
     Active Substance: FENTANYL
     Indication: SURGERY
     Route: 065
     Dates: start: 20141216, end: 20141217
  26. ROSUVASTATIN [Concomitant]
     Active Substance: ROSUVASTATIN
     Indication: HYPERCHOLESTEROLAEMIA
     Route: 048
     Dates: start: 2008
  27. NITROGLYCERIN. [Concomitant]
     Active Substance: NITROGLYCERIN
     Route: 048
     Dates: start: 20110904, end: 20111008
  28. CIPROFLOXACIN. [Concomitant]
     Active Substance: CIPROFLOXACIN
     Indication: INFECTION PROPHYLAXIS
     Dosage: 1000 MILLIGRAM
     Route: 048
     Dates: start: 20130703, end: 20130705
  29. ZOPICLONE [Concomitant]
     Active Substance: ZOPICLONE
     Route: 048
     Dates: start: 20101105, end: 20110409
  30. TAMSULOSINE PROPIONATE [Concomitant]
     Indication: BENIGN PROSTATIC HYPERPLASIA
     Route: 048
     Dates: start: 20110609
  31. AMOXICILLIN. [Concomitant]
     Active Substance: AMOXICILLIN
     Indication: INFECTION PROPHYLAXIS
     Dosage: 8 DROPS
     Route: 048
     Dates: start: 20120216, end: 20120216
  32. CIPRODEX [Concomitant]
     Active Substance: CIPROFLOXACIN HYDROCHLORIDE\DEXAMETHASONE
     Indication: EAR INFECTION
     Route: 065
     Dates: start: 20120528, end: 20120606
  33. MOXIFLOXACIN. [Concomitant]
     Active Substance: MOXIFLOXACIN
     Dosage: 50 MILLIGRAM
     Route: 065
     Dates: start: 20130312, end: 20130318
  34. NEPAFENAC [Concomitant]
     Active Substance: NEPAFENAC
     Dosage: 1 PERCENT
     Route: 065
     Dates: start: 20130114, end: 20130120
  35. PREDNISOLONE. [Concomitant]
     Active Substance: PREDNISOLONE
     Indication: CATARACT
     Dosage: 25 MILLIGRAM
     Route: 065
     Dates: start: 20130107, end: 20130113
  36. PREDNISOLONE. [Concomitant]
     Active Substance: PREDNISOLONE
     Route: 065
     Dates: start: 20130402, end: 20130408
  37. LASIX [Concomitant]
     Active Substance: FUROSEMIDE
     Indication: OEDEMA PERIPHERAL
     Route: 048
     Dates: start: 20140713
  38. IMOVANE [Concomitant]
     Active Substance: ZOPICLONE
     Indication: INSOMNIA
     Route: 048
     Dates: start: 20140710
  39. CEFAZOLIN [Concomitant]
     Active Substance: CEFAZOLIN
     Indication: ANTIBIOTIC PROPHYLAXIS
     Route: 041
     Dates: start: 20141216, end: 20141216
  40. ASPIRIN. [Concomitant]
     Active Substance: ASPIRIN
     Indication: BACK PAIN
  41. CIPROFLOXACIN. [Concomitant]
     Active Substance: CIPROFLOXACIN
     Indication: EAR INFECTION
     Route: 048
     Dates: start: 20120621, end: 20120627
  42. HEPARIN [Concomitant]
     Active Substance: HEPARIN SODIUM
     Route: 058
     Dates: start: 20141216, end: 20141219
  43. PREDNISOLONE. [Concomitant]
     Active Substance: PREDNISOLONE
     Dosage: 2 TABLET
     Route: 065
     Dates: start: 20130121, end: 20130127
  44. TEVA-DOXYCYCLINE [Concomitant]
     Active Substance: DOXYCYCLINE
     Indication: ROSACEA
     Route: 048
     Dates: start: 20130308, end: 20130410
  45. MIRABEGRON [Concomitant]
     Active Substance: MIRABEGRON
     Indication: BENIGN PROSTATIC HYPERPLASIA
     Route: 048
     Dates: start: 20130706, end: 20130810
  46. ZOLPIDEM [Concomitant]
     Active Substance: ZOLPIDEM\ZOLPIDEM TARTRATE
     Indication: INSOMNIA
     Route: 048
     Dates: start: 20130926, end: 20140129
  47. METOPROLOL. [Concomitant]
     Active Substance: METOPROLOL
     Indication: SURGERY
     Route: 048
     Dates: start: 20141125
  48. FLEET ENEMA SODIUM PHOSPHATE [Concomitant]
     Indication: SURGERY
     Route: 054
     Dates: start: 20141216, end: 20141216
  49. NAPROXEN. [Concomitant]
     Active Substance: NAPROXEN
     Indication: ABDOMINAL PAIN
     Route: 048
     Dates: start: 20141216, end: 20141217
  50. ASPIRIN. [Concomitant]
     Active Substance: ASPIRIN
     Indication: ARTHRALGIA
     Route: 048
     Dates: start: 20100930, end: 20111021
  51. INFLUENZA VACCINE [Concomitant]
     Active Substance: INFLUENZA VIRUS VACCINE
     Indication: INFLUENZA
     Route: 058
     Dates: start: 20101103, end: 20101103
  52. FUROSEMIDE. [Concomitant]
     Active Substance: FUROSEMIDE
     Indication: PLEURAL EFFUSION
     Dosage: 100 MILLIGRAM
     Route: 048
     Dates: start: 20101223, end: 20110104
  53. PAMIDRONATE DISODIUM. [Concomitant]
     Active Substance: PAMIDRONATE DISODIUM
     Route: 041
     Dates: start: 20120414, end: 20140806
  54. PAMIDRONATE DISODIUM. [Concomitant]
     Active Substance: PAMIDRONATE DISODIUM
     Route: 041
     Dates: start: 20140807
  55. MUPIROCIN. [Concomitant]
     Active Substance: MUPIROCIN
     Indication: ANTIBIOTIC THERAPY
     Dosage: 250 MILLIGRAM
     Route: 061
     Dates: start: 20120209, end: 20120215
  56. NEPAFENAC [Concomitant]
     Active Substance: NEPAFENAC
     Route: 065
     Dates: start: 20130313, end: 20130318
  57. PREDNISOLONE. [Concomitant]
     Active Substance: PREDNISOLONE
     Dosage: 800 IU (INTERNATIONAL UNIT)
     Route: 065
     Dates: start: 20130128, end: 20130203
  58. PREDNISOLONE. [Concomitant]
     Active Substance: PREDNISOLONE
     Route: 065
     Dates: start: 20130319, end: 20130325
  59. ACETAMINOPHEN. [Concomitant]
     Active Substance: ACETAMINOPHEN
     Indication: NASOPHARYNGITIS
     Dosage: 20 MILLIGRAM
     Route: 048
     Dates: start: 20130118, end: 20130119
  60. ACETAMINOPHEN. [Concomitant]
     Active Substance: ACETAMINOPHEN
     Indication: PAIN
     Route: 048
     Dates: start: 20140206
  61. CLOBETASOL PROPIONATE. [Concomitant]
     Active Substance: CLOBETASOL PROPIONATE
     Indication: ROSACEA
     Route: 061
     Dates: start: 20130308, end: 20130403
  62. TYLENOL NIGHT TIME [Concomitant]
     Indication: INSOMNIA
     Route: 048
     Dates: start: 20131003, end: 20140319
  63. BUPIVACAINE [Concomitant]
     Active Substance: BUPIVACAINE
     Indication: SURGERY
     Route: 065
     Dates: start: 20141216, end: 20141217
  64. DEXAMETHASONE. [Suspect]
     Active Substance: DEXAMETHASONE
     Route: 048
     Dates: start: 20141031
  65. CELECOXIB. [Concomitant]
     Active Substance: CELECOXIB
     Indication: ARTHRALGIA
     Route: 048
     Dates: start: 2008, end: 20100930
  66. ASPIRIN. [Concomitant]
     Active Substance: ASPIRIN
     Indication: INFLUENZA
     Route: 048
     Dates: start: 2007
  67. LORAZEPAM. [Concomitant]
     Active Substance: LORAZEPAM
     Indication: INSOMNIA
     Route: 048
     Dates: start: 20101003, end: 20111016
  68. TRAZODONE CHLORHYDRATE [Concomitant]
     Indication: INSOMNIA
     Route: 048
     Dates: start: 20101025, end: 20110218
  69. CIPROFLOXACIN. [Concomitant]
     Active Substance: CIPROFLOXACIN
     Indication: PROPHYLAXIS URINARY TRACT INFECTION
     Dosage: .4 MILLIGRAM
     Route: 048
     Dates: start: 20110614, end: 20110622
  70. NEPAFENAC [Concomitant]
     Active Substance: NEPAFENAC
     Dosage: 500 MILLIGRAM
     Route: 065
     Dates: start: 20130402, end: 20130408
  71. PREDNISOLONE. [Concomitant]
     Active Substance: PREDNISOLONE
     Dosage: 500 MILLIGRAM
     Route: 065
     Dates: start: 20130114, end: 20130120
  72. PREDNISOLONE. [Concomitant]
     Active Substance: PREDNISOLONE
     Route: 065
     Dates: start: 20130312, end: 20130318
  73. ROBAX PLATINUM [Concomitant]
     Indication: PAIN
     Route: 048
     Dates: start: 20140612
  74. CALCIUM [Concomitant]
     Active Substance: CALCIUM
     Indication: SUPPLEMENTATION THERAPY
     Route: 048
     Dates: start: 20140710
  75. POTASSIUM [Concomitant]
     Active Substance: POTASSIUM
     Indication: SURGERY
     Dosage: MMOL/L
     Route: 041
     Dates: start: 20141217, end: 20141218
  76. DEXAMETHASONE. [Suspect]
     Active Substance: DEXAMETHASONE
     Indication: PLASMA CELL MYELOMA
     Route: 048
     Dates: start: 20100930
  77. ASPIRIN. [Concomitant]
     Active Substance: ASPIRIN
     Indication: CARDIAC DISORDER
  78. METAMUCIL [Concomitant]
     Active Substance: PLANTAGO SEED
     Indication: CONSTIPATION
     Route: 048
     Dates: start: 20101015, end: 20101230
  79. NITROGLYCERIN. [Concomitant]
     Active Substance: NITROGLYCERIN
     Indication: CHEST PAIN
     Route: 048
     Dates: start: 20101017, end: 20101017
  80. NEPAFENAC [Concomitant]
     Active Substance: NEPAFENAC
     Route: 065
     Dates: start: 20130319, end: 20130325
  81. VITAMIN D [Concomitant]
     Active Substance: CHOLECALCIFEROL
     Indication: SUPPLEMENTATION THERAPY
     Route: 048
     Dates: start: 20140710
  82. CC-5013 [Suspect]
     Active Substance: LENALIDOMIDE
     Indication: PLASMA CELL MYELOMA
     Route: 048
     Dates: start: 20100930
  83. NITROGLYCERIN. [Concomitant]
     Active Substance: NITROGLYCERIN
     Indication: ANGINA PECTORIS
     Route: 048
     Dates: start: 20101002, end: 20101002
  84. PNEUMOCOCCAL VACCINE POLYVALENT NOS [Concomitant]
     Active Substance: PNEUMOCOCCAL VACCINE POLYVALENT
     Indication: PNEUMONIA
     Dosage: 25 MILLIGRAM
     Route: 058
     Dates: start: 20101125, end: 20101125
  85. NEPAFENAC [Concomitant]
     Active Substance: NEPAFENAC
     Route: 065
     Dates: start: 20130121, end: 20130127
  86. PREDNISOLONE. [Concomitant]
     Active Substance: PREDNISOLONE
     Dosage: 130 MILLILITER
     Route: 065
     Dates: start: 20130326, end: 20130401
  87. TYLENOL NIGHT TIME [Concomitant]
     Indication: ABDOMINAL PAIN
     Route: 048
     Dates: start: 20141216
  88. ATIVAN [Concomitant]
     Active Substance: LORAZEPAM
     Indication: INSOMNIA
     Route: 048
     Dates: start: 20140711
  89. METRONIDAZOLE. [Concomitant]
     Active Substance: METRONIDAZOLE
     Indication: INFECTION PROPHYLAXIS
     Route: 041
     Dates: start: 20141216, end: 20141216
  90. VOLUVEN [Concomitant]
     Active Substance: HYDROXYETHYL STARCH 130/0.4
     Indication: ANTIBIOTIC PROPHYLAXIS
     Route: 041
     Dates: start: 20141217, end: 20141218

REACTIONS (1)
  - Colon dysplasia [Recovered/Resolved with Sequelae]

NARRATIVE: CASE EVENT DATE: 20141104
